FAERS Safety Report 6246592-1 (Version None)
Quarter: 2009Q2

REPORT INFORMATION
  Report Type: 
  Country: None (occurrence: None)
  Receive Date: 20090626
  Receipt Date: 20090616
  Transmission Date: 20091009
  Serious: Yes (Hospitalization)
  Sender: FDA-Public Use
  Company Number: US-PFIZER INC-2008096248

PATIENT
  Age: 76 Year

DRUGS (19)
  1. AXITINIB [Suspect]
     Indication: COLORECTAL CANCER
     Dosage: 10 MG, 2X/DAY
     Route: 048
     Dates: start: 20080701, end: 20080827
  2. CAMPTOSAR [Suspect]
     Indication: COLORECTAL CANCER
     Dosage: 340 MG, EVERY 2 WKS
     Route: 042
     Dates: start: 20080709, end: 20080903
  3. FLUOROURACIL [Suspect]
     Indication: COLORECTAL CANCER
     Dosage: 750 MG, EVERY 2 WEEKS
     Route: 040
     Dates: start: 20080813, end: 20080903
  4. FLUOROURACIL [Suspect]
     Dosage: 4500 MG, INFUSION, EVERY 2 WEEKS
     Route: 042
     Dates: start: 20080813, end: 20080903
  5. CALCIUM FOLINATE [Suspect]
     Indication: COLORECTAL CANCER
     Dosage: 750 MG, EVERY 2 WEEKS
     Route: 042
     Dates: start: 20080709, end: 20080903
  6. MEGESTROL ACETATE [Concomitant]
     Indication: ANOREXIA
     Dosage: 20 ML, 1X/DAY
     Dates: start: 20080701
  7. ATROPINE SULFATE [Concomitant]
     Indication: ILL-DEFINED DISORDER
     Dosage: 0.4, 2X/DAY
     Dates: end: 20080903
  8. FUROSEMIDE [Concomitant]
     Indication: FLUID RETENTION
     Dosage: UNK
  9. K-TAB [Concomitant]
     Indication: HYPOKALAEMIA
     Dosage: UNK
  10. NIFEDICAL [Concomitant]
     Indication: HYPERTENSION
     Dosage: SLOW RELEASE, EVERY 2 DAYS
  11. PREDNISOLONE ACETATE [Concomitant]
     Dosage: UNK, EVERY 2 DAYS
     Route: 047
  12. SYNTHROID [Concomitant]
     Indication: HYPOTHYROIDISM
     Dosage: UNK
  13. ACETAMINOPHEN [Concomitant]
     Dosage: 650 MG, 1X/DAY
     Dates: start: 20080709, end: 20080903
  14. DEXAMETHASONE [Concomitant]
     Indication: ILL-DEFINED DISORDER
     Dosage: 10 MG, AS NECESSARY
     Dates: start: 20070705, end: 20080903
  15. DIPHENHYDRAMINE [Concomitant]
     Indication: ILL-DEFINED DISORDER
     Dosage: 25 MG, AS NECESSARY
     Dates: start: 20080903, end: 20080903
  16. PALONOSETRON [Concomitant]
     Indication: NAUSEA
     Dosage: 25 UG, EVERY CHEMO TREATMENT
     Dates: start: 20070705, end: 20080903
  17. PALONOSETRON [Concomitant]
     Indication: VOMITING
  18. RED BLOOD CELLS [Concomitant]
     Indication: ANAEMIA
     Dosage: 2 IU, AS NECESSARY
     Dates: start: 20080923, end: 20080923
  19. SODIUM CHLORIDE [Concomitant]
     Indication: FLUID REPLACEMENT
     Dosage: 250 ML, AS NECESSARY
     Dates: start: 20080709, end: 20080903

REACTIONS (1)
  - HYPOVOLAEMIA [None]
